FAERS Safety Report 7727185-3 (Version None)
Quarter: 2011Q3

REPORT INFORMATION
  Report Type: 
  Country: None (occurrence: None)
  Receive Date: 20110902
  Receipt Date: 20110205
  Transmission Date: 20111222
  Serious: No
  Sender: FDA-Public Use
  Company Number: US-BAYER-2011-012798

PATIENT
  Sex: Female

DRUGS (2)
  1. VALPROIC ACID [Concomitant]
  2. MIRENA [Suspect]
     Indication: CONTRACEPTION
     Dosage: 20 MCG/24HR, CONT
     Route: 015
     Dates: start: 20080501

REACTIONS (2)
  - MENSTRUATION IRREGULAR [None]
  - HORMONE LEVEL ABNORMAL [None]
